FAERS Safety Report 9504773 (Version 3)
Quarter: 2014Q1

REPORT INFORMATION
  Report Type: Spontaneous
  Country: US (occurrence: US)
  Receive Date: 20130906
  Receipt Date: 20140317
  Transmission Date: 20141002
  Serious: Yes (Hospitalization)
  Sender: FDA-Public Use
  Company Number: US-B.I. PHARMACEUTICALS,INC./RIDGEFIELD-2013-BI-27592BP

PATIENT
  Age: 83 Year
  Sex: Male
  Weight: 90.72 kg

DRUGS (18)
  1. PRADAXA [Suspect]
     Indication: ATRIAL FIBRILLATION
     Route: 065
     Dates: start: 20120518, end: 20120623
  2. ASPIRIN [Concomitant]
     Route: 065
     Dates: end: 20120623
  3. OCUVITE [Concomitant]
     Route: 065
  4. IBUPROFEN [Concomitant]
     Route: 065
  5. ZOLPIDEM [Concomitant]
     Route: 065
     Dates: start: 2010, end: 2012
  6. SPIRONOLACTONE [Concomitant]
     Route: 065
     Dates: start: 2008, end: 2012
  7. VICODIN [Concomitant]
     Route: 065
     Dates: start: 2010, end: 2012
  8. LISINOPRIL [Concomitant]
     Dosage: 10 MG
     Route: 065
  9. CITALOPRAM [Concomitant]
     Dosage: 20 MG
     Route: 065
  10. MULTAQ [Concomitant]
     Dosage: 80 MG
     Route: 065
  11. KLOR-CON [Concomitant]
     Route: 065
     Dates: start: 2008, end: 2012
  12. ALPRAZOLAM [Concomitant]
     Route: 065
  13. METOPROLOL [Concomitant]
     Route: 065
     Dates: start: 2008, end: 20120623
  14. ALLOPURINOL [Concomitant]
     Dosage: 100 MG
     Route: 065
  15. ANUCORT [Concomitant]
     Route: 065
  16. FLAXSEED OIL [Concomitant]
     Dosage: 100 MG
     Route: 065
  17. LASIX [Concomitant]
     Dosage: 40 MG
     Route: 065
  18. ZOCOR [Concomitant]
     Dosage: 20 MG
     Route: 048

REACTIONS (2)
  - Rectal haemorrhage [Recovered/Resolved]
  - Haemorrhagic anaemia [Unknown]
